FAERS Safety Report 7236335-7 (Version None)
Quarter: 2011Q1

REPORT INFORMATION
  Report Type: 
  Country: None (occurrence: None)
  Receive Date: 20110120
  Receipt Date: 20110117
  Transmission Date: 20110831
  Serious: Yes (Other)
  Sender: FDA-Public Use
  Company Number: US-ABBOTT-05P-163-0318537-00

PATIENT
  Sex: Female
  Weight: 54.026 kg

DRUGS (3)
  1. FIORICET [Concomitant]
     Indication: PAIN
  2. HUMIRA [Suspect]
     Indication: RHEUMATOID ARTHRITIS
     Route: 058
     Dates: start: 20051001
  3. MEDROL [Concomitant]
     Indication: RHEUMATOID ARTHRITIS
     Route: 048

REACTIONS (6)
  - NAUSEA [None]
  - INJECTION SITE PRURITUS [None]
  - BACK PAIN [None]
  - ARNOLD-CHIARI MALFORMATION [None]
  - HEADACHE [None]
  - FATIGUE [None]
